FAERS Safety Report 4892949-0 (Version None)
Quarter: 2006Q1

REPORT INFORMATION
  Report Type: 
  Country: None (occurrence: None)
  Receive Date: 20060126
  Receipt Date: 20051117
  Transmission Date: 20060701
  Serious: Yes (Life-Threatening, Hospitalization)
  Sender: FDA-Public Use
  Company Number: DE-MERCK-0511DEU00125

PATIENT
  Age: 72 Year
  Sex: Female
  Weight: 64 kg

DRUGS (18)
  1. VIOXX [Suspect]
     Indication: OSTEOARTHRITIS
     Route: 048
     Dates: start: 20010330, end: 20010417
  2. VIOXX [Suspect]
     Route: 048
     Dates: start: 20010418, end: 20010827
  3. VIOXX [Suspect]
     Route: 048
     Dates: start: 20010828, end: 20020204
  4. VIOXX [Suspect]
     Route: 048
     Dates: start: 20020205, end: 20020601
  5. VIOXX [Suspect]
     Route: 048
     Dates: start: 20031219, end: 20040101
  6. VIOXX [Suspect]
     Route: 048
     Dates: start: 20030604
  7. VIOXX [Suspect]
     Indication: SPINAL OSTEOARTHRITIS
     Route: 048
     Dates: start: 20010330, end: 20010417
  8. VIOXX [Suspect]
     Route: 048
     Dates: start: 20010418, end: 20010827
  9. VIOXX [Suspect]
     Route: 048
     Dates: start: 20010828, end: 20020204
  10. VIOXX [Suspect]
     Route: 048
     Dates: start: 20020205, end: 20020601
  11. VIOXX [Suspect]
     Route: 048
     Dates: start: 20031219, end: 20040101
  12. VIOXX [Suspect]
     Route: 048
     Dates: start: 20030604
  13. DICLOFENAC [Concomitant]
     Route: 065
     Dates: start: 20031121
  14. TRAMADOL HYDROCHLORIDE [Concomitant]
     Route: 065
     Dates: start: 20031121
  15. TRAMADOL HYDROCHLORIDE [Concomitant]
     Route: 065
     Dates: start: 20011209
  16. LEVOTHYROXINE SODIUM [Concomitant]
     Indication: HYPOTHYROIDISM
     Route: 048
     Dates: start: 19950101
  17. OMEPRAZOLE [Concomitant]
     Indication: GASTRITIS
     Route: 065
     Dates: start: 20020823
  18. METHIONINE [Concomitant]
     Indication: URINE ANALYSIS ABNORMAL
     Route: 065
     Dates: start: 20020823

REACTIONS (12)
  - AORTIC ARTERIOSCLEROSIS [None]
  - CEREBROVASCULAR ACCIDENT [None]
  - CEREBROVASCULAR INSUFFICIENCY [None]
  - FACIAL BONES FRACTURE [None]
  - GASTROENTERITIS [None]
  - GOITRE [None]
  - HEPATOCELLULAR DAMAGE [None]
  - HYPERTHYROIDISM [None]
  - IRON DEFICIENCY [None]
  - LIPID METABOLISM DISORDER [None]
  - MUSCLE SPASMS [None]
  - VERTIGO [None]
